FAERS Safety Report 4574803-7 (Version None)
Quarter: 2005Q1

REPORT INFORMATION
  Report Type: 
  Country: None (occurrence: None)
  Receive Date: 20050208
  Receipt Date: 20040702
  Transmission Date: 20050727
  Serious: Yes (Other)
  Sender: FDA-Public Use
  Company Number: US-GLAXOSMITHKLINE-A0516909A

PATIENT
  Age: 24 Year
  Sex: Female

DRUGS (2)
  1. PAXIL CR [Suspect]
     Dosage: 25MG TWICE PER DAY
     Route: 048
     Dates: start: 20040101, end: 20040628
  2. XANAX [Concomitant]

REACTIONS (4)
  - ABNORMAL DREAMS [None]
  - CONFUSIONAL STATE [None]
  - HALLUCINATION [None]
  - MYALGIA [None]
